FAERS Safety Report 16641988 (Version 1)
Quarter: 2019Q3

REPORT INFORMATION
  Report Type: Spontaneous
  Country: US (occurrence: US)
  Receive Date: 20190729
  Receipt Date: 20190729
  Transmission Date: 20191004
  Serious: No
  Sender: FDA-Public Use
  Company Number: US-TAKEDA-2019TUS045488

PATIENT
  Sex: Female
  Weight: 76.19 kg

DRUGS (3)
  1. ENTYVIO [Suspect]
     Active Substance: VEDOLIZUMAB
     Indication: CROHN^S DISEASE
     Dosage: UNK
     Route: 042
  2. GLATOPA [Concomitant]
     Active Substance: GLATIRAMER ACETATE
     Indication: MULTIPLE SCLEROSIS
     Dosage: UNK
  3. TRAZODONE [Concomitant]
     Active Substance: TRAZODONE HYDROCHLORIDE
     Dosage: UNK

REACTIONS (1)
  - Drug ineffective [Unknown]
